FAERS Safety Report 8943521 (Version 1)
Quarter: 2012Q4

REPORT INFORMATION
  Report Type: 
  Country: US (occurrence: US)
  Receive Date: 20121204
  Receipt Date: 20121204
  Transmission Date: 20130627
  Serious: No
  Sender: FDA-Public Use
  Company Number: US-ABBOTT-12P-163-0997077-00

PATIENT
  Age: 54 Year
  Sex: Male
  Weight: 93.07 kg

DRUGS (2)
  1. OMNICEF [Suspect]
     Indication: SINUSITIS
     Dates: start: 20121014
  2. OMNICEF [Suspect]
     Indication: HEADACHE

REACTIONS (4)
  - Arthralgia [Not Recovered/Not Resolved]
  - Pruritus [Not Recovered/Not Resolved]
  - Headache [Not Recovered/Not Resolved]
  - Drug ineffective [Not Recovered/Not Resolved]
